FAERS Safety Report 23647207 (Version 1)
Quarter: 2024Q1

REPORT INFORMATION
  Report Type: Spontaneous
  Country: SE (occurrence: SE)
  Receive Date: 20240319
  Receipt Date: 20240319
  Transmission Date: 20240409
  Serious: Yes (Hospitalization, Other)
  Sender: FDA-Public Use
  Company Number: SE-TEVA-VS-3168432

PATIENT
  Age: 86 Year
  Sex: Male

DRUGS (6)
  1. SERTRALINE HYDROCHLORIDE [Suspect]
     Active Substance: SERTRALINE HYDROCHLORIDE
     Dosage: DRUG DISCONTINUED AT UNKNOWN DATE.
     Route: 065
     Dates: start: 20231004
  2. SERTRALINE HYDROCHLORIDE [Suspect]
     Active Substance: SERTRALINE HYDROCHLORIDE
     Route: 065
     Dates: start: 20230913, end: 20231003
  3. ONDANSETRON [Suspect]
     Active Substance: ONDANSETRON
     Indication: Adverse drug reaction
     Dosage: (AT 8 AM AND 8 PM)
     Route: 065
     Dates: start: 202310, end: 202311
  4. MORPHINE [Suspect]
     Active Substance: MORPHINE
     Route: 065
     Dates: start: 20231008, end: 20231016
  5. MORPHINE [Suspect]
     Active Substance: MORPHINE
     Route: 065
     Dates: start: 20231017, end: 20231020
  6. MORPHINE [Suspect]
     Active Substance: MORPHINE
     Dosage: DISCONTINUED AFTER 26-NOV-2023
     Route: 065
     Dates: start: 20231021

REACTIONS (8)
  - Femur fracture [Unknown]
  - Rash [Recovering/Resolving]
  - Dizziness [Not Recovered/Not Resolved]
  - Fall [Unknown]
  - Confusional state [Unknown]
  - Ulcer haemorrhage [Unknown]
  - Haematochezia [Unknown]
  - Haematemesis [Unknown]

NARRATIVE: CASE EVENT DATE: 20230101
